FAERS Safety Report 12652150 (Version 1)
Quarter: 2016Q3

REPORT INFORMATION
  Report Type: Spontaneous
  Country: JP (occurrence: JP)
  Receive Date: 20160815
  Receipt Date: 20160815
  Transmission Date: 20161109
  Serious: Yes (Hospitalization)
  Sender: FDA-Public Use
  Company Number: JP-GLAXOSMITHKLINE-JP2016JPN114790

PATIENT
  Age: 67 Year
  Sex: Female

DRUGS (3)
  1. VALTREX [Suspect]
     Active Substance: VALACYCLOVIR HYDROCHLORIDE
     Indication: HERPES ZOSTER
     Dosage: UNK
     Route: 048
     Dates: start: 20160801, end: 20160807
  2. MOSAPRIDE CITRATE HYDRATE [Concomitant]
     Active Substance: MOSAPRIDE CITRATE DIHYDRATE
     Dosage: UNK
  3. PROTECADIN [Concomitant]
     Active Substance: LAFUTIDINE
     Dosage: UNK

REACTIONS (4)
  - Nausea [Unknown]
  - Vomiting [Unknown]
  - Hypophagia [Unknown]
  - Decreased appetite [Unknown]

NARRATIVE: CASE EVENT DATE: 201608
